FAERS Safety Report 14404765 (Version 6)
Quarter: 2018Q4

REPORT INFORMATION
  Report Type: Report from Study
  Country: CA (occurrence: CA)
  Receive Date: 20180118
  Receipt Date: 20181231
  Transmission Date: 20190204
  Serious: Yes (Hospitalization, Other)
  Sender: FDA-Public Use
  Company Number: CA-ROCHE-1862725

PATIENT
  Age: 63 Year
  Sex: Female

DRUGS (16)
  1. VENTOLIN [Concomitant]
     Active Substance: ALBUTEROL SULFATE
     Dosage: PRN
     Route: 065
  2. VENLAFAXINE XR [Concomitant]
     Active Substance: VENLAFAXINE HYDROCHLORIDE
  3. BUPROPION. [Concomitant]
     Active Substance: BUPROPION
  4. TEMAZEPAM. [Concomitant]
     Active Substance: TEMAZEPAM
  5. ALVESCO [Concomitant]
     Active Substance: CICLESONIDE
  6. LANSOPRAZOLE. [Concomitant]
     Active Substance: LANSOPRAZOLE
  7. ACETAMINOPHEN. [Concomitant]
     Active Substance: ACETAMINOPHEN
     Indication: PREMEDICATION
     Route: 048
     Dates: start: 20161130
  8. PLAQUENIL [Concomitant]
     Active Substance: HYDROXYCHLOROQUINE SULFATE
  9. METHYLPREDNISOLONE. [Concomitant]
     Active Substance: METHYLPREDNISOLONE
     Indication: PREMEDICATION
     Route: 042
     Dates: start: 20161130
  10. LACTULOSE. [Concomitant]
     Active Substance: LACTULOSE
     Dosage: PRN
     Route: 065
  11. SPIRIVA [Concomitant]
     Active Substance: TIOTROPIUM BROMIDE MONOHYDRATE
  12. RITUXAN [Suspect]
     Active Substance: RITUXIMAB
     Indication: RHEUMATOID ARTHRITIS
     Dosage: PREVIOUS RITUXIMAB DOSE ON 14/DEC/2016
     Route: 042
     Dates: start: 20161130
  13. DIPHENHYDRAMINE. [Concomitant]
     Active Substance: DIPHENHYDRAMINE
     Indication: PREMEDICATION
     Route: 048
     Dates: start: 20161130
  14. METHOTREXATE. [Concomitant]
     Active Substance: METHOTREXATE
  15. EUROFOLIC [Concomitant]
     Active Substance: LEVOLEUCOVORIN CALCIUM
  16. PREGABALIN. [Concomitant]
     Active Substance: PREGABALIN

REACTIONS (15)
  - Pulmonary oedema [Recovering/Resolving]
  - Respiratory tract infection viral [Unknown]
  - C-reactive protein increased [Unknown]
  - Spinal compression fracture [Unknown]
  - Cataract [Not Recovered/Not Resolved]
  - Blood pressure fluctuation [Unknown]
  - Hypertension [Unknown]
  - Pneumonia [Recovering/Resolving]
  - Influenza [Recovering/Resolving]
  - Pain in extremity [Not Recovered/Not Resolved]
  - Cardiomyopathy [Unknown]
  - Arthropathy [Unknown]
  - Rheumatoid nodule [Not Recovered/Not Resolved]
  - Back pain [Not Recovered/Not Resolved]
  - Oxygen saturation decreased [Unknown]

NARRATIVE: CASE EVENT DATE: 20161130
